FAERS Safety Report 21138867 (Version 9)
Quarter: 2023Q4

REPORT INFORMATION
  Report Type: Report from Study
  Country: US (occurrence: US)
  Receive Date: 20220727
  Receipt Date: 20231018
  Transmission Date: 20240110
  Serious: No
  Sender: FDA-Public Use
  Company Number: US-NOVARTISTESTPH-NVSC2022US170018

PATIENT
  Age: 56 Year
  Sex: Male

DRUGS (4)
  1. COSENTYX [Suspect]
     Active Substance: SECUKINUMAB
     Indication: Psoriasis
     Dosage: 300 MG, QW
     Route: 058
     Dates: start: 20220501
  2. COSENTYX [Suspect]
     Active Substance: SECUKINUMAB
     Dosage: 300 MG, Q2W
     Route: 065
  3. COSENTYX [Suspect]
     Active Substance: SECUKINUMAB
     Dosage: 300 MG
     Route: 065
  4. TRIAMCINOLONE [Suspect]
     Active Substance: TRIAMCINOLONE
     Indication: Psoriasis
     Dosage: UNK
     Route: 065

REACTIONS (10)
  - Pigmentation disorder [Not Recovered/Not Resolved]
  - Skin discolouration [Unknown]
  - Psoriasis [Unknown]
  - Drug effect less than expected [Unknown]
  - Pruritus [Unknown]
  - Skin lesion [Unknown]
  - Melanocytic naevus [Unknown]
  - Macule [Unknown]
  - Papule [Unknown]
  - Lentigo [Unknown]

NARRATIVE: CASE EVENT DATE: 20220501
